FAERS Safety Report 6768623-2 (Version None)
Quarter: 2010Q2

REPORT INFORMATION
  Report Type: 
  Country: None (occurrence: None)
  Receive Date: 20100614
  Receipt Date: 20100604
  Transmission Date: 20101027
  Serious: Yes (Other)
  Sender: FDA-Public Use
  Company Number: US-PFIZER INC-2010060496

PATIENT
  Sex: Female
  Weight: 45.351 kg

DRUGS (2)
  1. LIPITOR [Suspect]
     Indication: BLOOD CHOLESTEROL INCREASED
     Dosage: 40 MG, 1X/DAY
     Route: 048
     Dates: end: 20100501
  2. ZETIA [Concomitant]
     Dosage: UNK

REACTIONS (4)
  - ANEURYSM [None]
  - DEMENTIA [None]
  - DYSPHAGIA [None]
  - HYPOTHYROIDISM [None]
